FAERS Safety Report 7904276-5 (Version None)
Quarter: 2011Q4

REPORT INFORMATION
  Report Type: 
  Country: None (occurrence: None)
  Receive Date: 20111109
  Receipt Date: 20111102
  Transmission Date: 20120403
  Serious: Yes (Other)
  Sender: FDA-Public Use
  Company Number: US-ABBOTT-11P-163-0871038-00

PATIENT
  Sex: Female
  Weight: 85.352 kg

DRUGS (8)
  1. OMEPRAZOLE [Concomitant]
     Indication: GASTROOESOPHAGEAL REFLUX DISEASE
  2. CYMBALTA [Concomitant]
     Indication: DEPRESSION
  3. AMBIEN [Concomitant]
     Indication: SLEEP DISORDER
  4. MELOXICAM [Concomitant]
     Indication: ANKYLOSING SPONDYLITIS
  5. VITAMIN D [Concomitant]
     Indication: BONE DISORDER
  6. HUMIRA [Suspect]
     Indication: ANKYLOSING SPONDYLITIS
     Dates: start: 20091201
  7. FENTANYL-100 [Concomitant]
     Indication: CHEST PAIN
     Route: 062
  8. XANAX [Concomitant]
     Indication: PANIC ATTACK

REACTIONS (2)
  - CHEST PAIN [None]
  - SUICIDAL IDEATION [None]
